FAERS Safety Report 5815786-9 (Version None)
Quarter: 2008Q3

REPORT INFORMATION
  Report Type: 
  Country: None (occurrence: None)
  Receive Date: 20080721
  Receipt Date: 20080616
  Transmission Date: 20090109
  Serious: No
  Sender: FDA-Public Use
  Company Number: US-BAYER-200826583NA

PATIENT

DRUGS (1)
  1. ULTRAVIST 300 [Suspect]

REACTIONS (2)
  - NAUSEA [None]
  - VOMITING [None]
